FAERS Safety Report 17910960 (Version 3)
Quarter: 2020Q3

REPORT INFORMATION
  Report Type: Report from Study
  Country: IT (occurrence: IT)
  Receive Date: 20200618
  Receipt Date: 20200706
  Transmission Date: 20201103
  Serious: Yes (Other)
  Sender: FDA-Public Use
  Company Number: IT-AUROBINDO-AUR-APL-2020-028586

PATIENT
  Sex: Male

DRUGS (8)
  1. SOFOSBUVIR [Suspect]
     Active Substance: SOFOSBUVIR
     Indication: CHRONIC HEPATITIS C
  2. RIBAVIRIN CAPSULE [Suspect]
     Active Substance: RIBAVIRIN
     Indication: HEPATITIS C
     Dosage: UNK
     Route: 048
  3. SIMEPREVIR [Suspect]
     Active Substance: SIMEPREVIR
     Indication: CHRONIC HEPATITIS C
  4. SOFOSBUVIR [Suspect]
     Active Substance: SOFOSBUVIR
     Indication: HIV INFECTION
  5. RIBAVIRIN CAPSULE [Suspect]
     Active Substance: RIBAVIRIN
     Indication: HIV INFECTION
  6. SIMEPREVIR [Suspect]
     Active Substance: SIMEPREVIR
     Indication: HIV INFECTION
     Dosage: UNK
     Route: 065
  7. RIBAVIRIN CAPSULE [Suspect]
     Active Substance: RIBAVIRIN
     Indication: CHRONIC HEPATITIS C
  8. SOFOSBUVIR [Suspect]
     Active Substance: SOFOSBUVIR
     Indication: HEPATITIS C
     Dosage: UNK
     Route: 065

REACTIONS (6)
  - Drug resistance [Unknown]
  - HIV infection [Unknown]
  - Drug ineffective [Unknown]
  - Chronic hepatitis C [Unknown]
  - Pathogen resistance [Unknown]
  - Treatment failure [Unknown]
